FAERS Safety Report 18354377 (Version 6)
Quarter: 2022Q2

REPORT INFORMATION
  Report Type: Other
  Country: US (occurrence: None)
  Receive Date: 20201007
  Receipt Date: 20220620
  Transmission Date: 20220720
  Serious: Yes (Hospitalization, Other)
  Sender: FDA-Public Use
  Company Number: US-ROCHE-2687798

PATIENT
  Age: 50 Year
  Sex: Male
  Weight: 156.18 kg

DRUGS (7)
  1. OCREVUS [Suspect]
     Active Substance: OCRELIZUMAB
     Indication: Relapsing-remitting multiple sclerosis
     Dosage: SPLIT-DOSE
     Route: 042
     Dates: start: 20200129, end: 20200212
  2. OCREVUS [Suspect]
     Active Substance: OCRELIZUMAB
     Dosage: DATE OF TREATMENT 01/FEB/2021.
     Route: 042
     Dates: start: 20200817
  3. OCREVUS [Suspect]
     Active Substance: OCRELIZUMAB
     Route: 042
  4. AMLODIPINE BESYLATE\BENAZEPRIL HYDROCHLORIDE [Concomitant]
     Active Substance: AMLODIPINE BESYLATE\BENAZEPRIL HYDROCHLORIDE
     Indication: Hypertension
     Dosage: 10 MG AND 20 MG
     Route: 048
  5. SIMVASTATIN [Concomitant]
     Active Substance: SIMVASTATIN
     Indication: Blood cholesterol increased
     Route: 048
  6. ZINC [Concomitant]
     Active Substance: ZINC
     Route: 048
  7. MAGNESIUM [Concomitant]
     Active Substance: MAGNESIUM
     Indication: Product used for unknown indication
     Route: 048

REACTIONS (13)
  - Tooth infection [Recovered/Resolved]
  - Tooth abscess [Not Recovered/Not Resolved]
  - Renal mass [Unknown]
  - Pulmonary mass [Unknown]
  - Hepatic cyst [Unknown]
  - Feeling abnormal [Unknown]
  - Hyperlipidaemia [Unknown]
  - White coat hypertension [Unknown]
  - Renal cancer [Recovered/Resolved]
  - Back pain [Not Recovered/Not Resolved]
  - Chest discomfort [Unknown]
  - Abdominal injury [Not Recovered/Not Resolved]
  - Drug ineffective [Unknown]

NARRATIVE: CASE EVENT DATE: 20200701
